FAERS Safety Report 5201733-X (Version None)
Quarter: 2006Q4

REPORT INFORMATION
  Report Type: 
  Country: None (occurrence: None)
  Receive Date: 20061013
  Receipt Date: 20050916
  Transmission Date: 20070319
  Serious: Yes (Other)
  Sender: FDA-Public Use
  Company Number: S05-USA-04328-01

PATIENT
  Age: 38 Year
  Sex: Male

DRUGS (2)
  1. LEXAPRO [Suspect]
     Indication: DEPRESSION
     Dates: start: 20050908
  2. WELLBUTRIN [Concomitant]

REACTIONS (3)
  - AGITATION [None]
  - DEPRESSION [None]
  - SUICIDAL IDEATION [None]
